FAERS Safety Report 8433755 (Version 6)
Quarter: 2018Q1

REPORT INFORMATION
  Report Type: Report from Study
  Country: JP (occurrence: JP)
  Receive Date: 20120229
  Receipt Date: 20180108
  Transmission Date: 20180509
  Serious: Yes (Hospitalization)
  Sender: FDA-Public Use
  Company Number: PHHO2012JP003248

PATIENT
  Age: 17 Year
  Sex: Male

DRUGS (37)
  1. ILARIS [Suspect]
     Active Substance: CANAKINUMAB
     Dosage: 600 MG, QD
     Route: 058
     Dates: start: 20120315, end: 20120315
  2. ILARIS [Suspect]
     Active Substance: CANAKINUMAB
     Dosage: 300 MG, QD
     Route: 058
     Dates: start: 20121122, end: 20121122
  3. ILARIS [Suspect]
     Active Substance: CANAKINUMAB
     Dosage: 300 MG, QD
     Route: 058
     Dates: start: 20130214, end: 20130214
  4. ILARIS [Suspect]
     Active Substance: CANAKINUMAB
     Dosage: 300 MG, QD
     Route: 058
     Dates: start: 20130517, end: 20130517
  5. ILARIS [Suspect]
     Active Substance: CANAKINUMAB
     Dosage: 300 MG, QD
     Route: 058
     Dates: start: 20140116, end: 20140116
  6. LOXONIN [Concomitant]
     Active Substance: LOXOPROFEN SODIUM
     Indication: CRYOPYRIN ASSOCIATED PERIODIC SYNDROME
     Dosage: UNK
     Route: 048
     Dates: start: 20100109
  7. PREDONINE [Concomitant]
     Active Substance: PREDNISOLONE
     Indication: CRYOPYRIN ASSOCIATED PERIODIC SYNDROME
     Dosage: 5 MG, UNK
     Route: 048
     Dates: start: 200906, end: 20100929
  8. ILARIS [Suspect]
     Active Substance: CANAKINUMAB
     Indication: CRYOPYRIN ASSOCIATED PERIODIC SYNDROME
     Dosage: 150 MG, UNK
     Route: 058
     Dates: start: 20100107, end: 20120126
  9. ILARIS [Suspect]
     Active Substance: CANAKINUMAB
     Indication: CHRONIC INFANTILE NEUROLOGICAL CUTANEOUS AND ARTICULAR SYNDROME
     Dosage: UNK
     Route: 058
     Dates: start: 20100107
  10. ILARIS [Suspect]
     Active Substance: CANAKINUMAB
     Dosage: 300 MG, QD
     Route: 058
     Dates: start: 20130418, end: 20130418
  11. ILARIS [Suspect]
     Active Substance: CANAKINUMAB
     Dosage: 300 MG, QD
     Route: 058
     Dates: start: 20130614, end: 20130614
  12. ILARIS [Suspect]
     Active Substance: CANAKINUMAB
     Dosage: 300 MG, QD
     Route: 058
     Dates: start: 20130705, end: 20130705
  13. ACUATIM [Concomitant]
     Active Substance: NADIFLOXACIN
     Indication: ECZEMA
     Dosage: UNK
     Route: 065
     Dates: start: 20100623
  14. ANAKINRA [Concomitant]
     Active Substance: ANAKINRA
     Indication: PRODUCT USED FOR UNKNOWN INDICATION
     Route: 065
  15. ILARIS [Suspect]
     Active Substance: CANAKINUMAB
     Dosage: 300 MG, QD
     Route: 058
     Dates: start: 20120807, end: 20120807
  16. ILARIS [Suspect]
     Active Substance: CANAKINUMAB
     Dosage: 300 MG, QD
     Route: 058
     Dates: start: 20130321, end: 20130321
  17. ILARIS [Suspect]
     Active Substance: CANAKINUMAB
     Dosage: 300 MG, QD
     Route: 058
     Dates: start: 20130802, end: 20130802
  18. GASTER [Concomitant]
     Active Substance: FAMOTIDINE
     Indication: PROPHYLAXIS AGAINST GASTROINTESTINAL ULCER
     Dosage: 20 MG, UNK
     Route: 048
     Dates: start: 20110310
  19. ALEGYSAL [Concomitant]
     Indication: CONJUNCTIVITIS ALLERGIC
     Dosage: UNK
     Route: 057
     Dates: start: 20110811
  20. ILARIS [Suspect]
     Active Substance: CANAKINUMAB
     Dosage: 300 MG, QD
     Route: 058
     Dates: start: 20121024, end: 20121024
  21. ILARIS [Suspect]
     Active Substance: CANAKINUMAB
     Dosage: 300 MG, QD
     Route: 058
     Dates: start: 20130830, end: 20130830
  22. ILARIS [Suspect]
     Active Substance: CANAKINUMAB
     Dosage: 300 MG, QD
     Route: 058
     Dates: start: 20130926, end: 20130926
  23. ILARIS [Suspect]
     Active Substance: CANAKINUMAB
     Dosage: 300 MG, QD
     Route: 058
     Dates: start: 20131024, end: 20131024
  24. ILARIS [Suspect]
     Active Substance: CANAKINUMAB
     Dosage: 600 MG, QD
     Route: 058
     Dates: start: 20120501, end: 20120501
  25. ILARIS [Suspect]
     Active Substance: CANAKINUMAB
     Dosage: 600 MG, QD
     Route: 058
     Dates: start: 20120613, end: 20120613
  26. ILARIS [Suspect]
     Active Substance: CANAKINUMAB
     Dosage: 300 MG, QD
     Route: 058
     Dates: start: 20120830, end: 20120830
  27. ILARIS [Suspect]
     Active Substance: CANAKINUMAB
     Dosage: 300 MG, QD
     Route: 058
     Dates: start: 20130117, end: 20130117
  28. ILARIS [Suspect]
     Active Substance: CANAKINUMAB
     Dosage: 300 MG, QD
     Route: 058
     Dates: start: 20121220, end: 20121220
  29. RINDERON VG [Concomitant]
     Active Substance: BETAMETHASONE VALERATE\GENTAMICIN SULFATE
     Indication: ECZEMA
     Dosage: UNK
     Route: 065
     Dates: start: 200906
  30. NAIXAN [Concomitant]
     Active Substance: NAPROXEN SODIUM
     Indication: POLYARTHRITIS
     Dosage: UNK
     Route: 048
     Dates: start: 20110310
  31. ILARIS [Suspect]
     Active Substance: CANAKINUMAB
     Dosage: 300 MG, QD
     Route: 058
     Dates: start: 20120927, end: 20120927
  32. ILARIS [Suspect]
     Active Substance: CANAKINUMAB
     Dosage: 300 MG, QD
     Route: 058
     Dates: start: 20140327, end: 20140327
  33. ILARIS [Suspect]
     Active Substance: CANAKINUMAB
     Dosage: 300 MG, QD
     Route: 058
     Dates: start: 20131121, end: 20131121
  34. ILARIS [Suspect]
     Active Substance: CANAKINUMAB
     Dosage: 300 MG, QD
     Route: 058
     Dates: start: 20131219, end: 20131219
  35. ILARIS [Suspect]
     Active Substance: CANAKINUMAB
     Dosage: 300 MG, QD
     Route: 058
     Dates: start: 20140227, end: 20140227
  36. HIRUDOID [Concomitant]
     Active Substance: GLYCOSAMINOGLYCANS
     Indication: ECZEMA
     Dosage: UNK
     Route: 065
     Dates: start: 20100109
  37. AZUNOL [Concomitant]
     Active Substance: SODIUM GUALENATE
     Indication: STOMATITIS
     Dosage: UNK
     Route: 048
     Dates: start: 20101201

REACTIONS (15)
  - Tooth injury [Recovered/Resolved]
  - Upper respiratory tract infection [Recovered/Resolved]
  - Appendicitis [Recovered/Resolved]
  - Diarrhoea [Recovered/Resolved]
  - Eczema [Recovering/Resolving]
  - Insomnia [Recovering/Resolving]
  - Bronchitis [Recovered/Resolved]
  - Otitis externa [Recovered/Resolved]
  - Gastroenteritis [Recovering/Resolving]
  - Oropharyngeal pain [Recovered/Resolved]
  - Eczema [Recovering/Resolving]
  - Musculoskeletal stiffness [Recovering/Resolving]
  - Nasopharyngitis [Recovered/Resolved]
  - Bronchitis [Recovered/Resolved]
  - Musculoskeletal stiffness [Recovering/Resolving]

NARRATIVE: CASE EVENT DATE: 20111102
